FAERS Safety Report 8803893 (Version 1)
Quarter: 2012Q4

REPORT INFORMATION
  Report Type: 
  Country: US (occurrence: US)
  Receive Date: 20120924
  Receipt Date: 20120924
  Transmission Date: 20130627
  Serious: No
  Sender: FDA-Public Use
  Company Number: US-PFIZER INC-2012234978

PATIENT
  Age: 52 Year
  Sex: Female
  Weight: 63.49 kg

DRUGS (10)
  1. NEURONTIN [Suspect]
     Indication: SWELLING
     Dosage: 600 mg, 3x/day
     Route: 048
     Dates: start: 201008, end: 2010
  2. NEURONTIN [Suspect]
     Indication: HYPOAESTHESIA
     Dosage: 300 mg, 3x/day
     Route: 048
     Dates: start: 2012
  3. NEURONTIN [Suspect]
     Indication: PARAESTHESIA
  4. NEURONTIN [Suspect]
     Indication: PAIN IN EXTREMITY
  5. LYRICA [Suspect]
     Indication: SWELLING
     Dosage: 75 mg, 3x/day
     Dates: start: 201010
  6. LYRICA [Suspect]
     Indication: HYPOAESTHESIA
  7. LYRICA [Suspect]
     Indication: PARAESTHESIA
  8. LYRICA [Suspect]
     Indication: PAIN IN EXTREMITY
  9. HYDROCODONE W/ACETAMINOPHEN [Concomitant]
     Indication: PAIN IN EXTREMITY
     Dosage: 10/325 mg, daily
  10. CYCLOBENZAPRINE [Concomitant]
     Indication: MUSCLE RELAXANT THERAPY
     Dosage: 10 mg,daily

REACTIONS (1)
  - Gait disturbance [Not Recovered/Not Resolved]
